FAERS Safety Report 17037469 (Version 2)
Quarter: 2020Q1

REPORT INFORMATION
  Report Type: Spontaneous
  Country: DE (occurrence: DE)
  Receive Date: 20191115
  Receipt Date: 20200327
  Transmission Date: 20200409
  Serious: Yes (Other)
  Sender: FDA-Public Use
  Company Number: DE-ASTRAZENECA-2019SF59691

PATIENT
  Age: 36 Year
  Sex: Female
  Weight: 59 kg

DRUGS (3)
  1. QUETIAPINE. [Suspect]
     Active Substance: QUETIAPINE
     Indication: SCHIZOAFFECTIVE DISORDER
     Dosage: 900 [MG/D (TO 400) ]/ UNTIL GW 5: 400 MG/D, GW 6 TO 7: 600 MG/D, FROM GW 7+3: 900 MG/D, FROM GW 3...
     Route: 048
     Dates: start: 20170901, end: 20180620
  2. OXYTOCIN. [Concomitant]
     Active Substance: OXYTOCIN
     Indication: LABOUR INDUCTION
     Dosage: UNK (41.3. - 41.3. GESTATIONAL WEEK)
     Route: 042
  3. RISPERDAL [Concomitant]
     Active Substance: RISPERIDONE
     Indication: SCHIZOAFFECTIVE DISORDER
     Dosage: 4 [MG/D ] (5. - 7.2. GESTATIONAL WEEK)
     Route: 048

REACTIONS (2)
  - Exposure during pregnancy [Unknown]
  - Gestational diabetes [Recovered/Resolved]
